FAERS Safety Report 9975551 (Version 1)
Quarter: 2014Q1

REPORT INFORMATION
  Report Type: Report from Study
  Country: US (occurrence: US)
  Receive Date: 20140306
  Receipt Date: 20140306
  Transmission Date: 20141002
  Serious: No
  Sender: FDA-Public Use
  Company Number: US-ABBVIE-13P-163-1158614-00

PATIENT
  Age: 41 Year
  Sex: Male

DRUGS (8)
  1. HUMIRA [Suspect]
     Indication: ANKYLOSING SPONDYLITIS
     Dates: start: 201106
  2. SOMA [Concomitant]
     Indication: MUSCLE SPASMS
     Route: 048
  3. HYDROCODONE [Concomitant]
     Indication: PAIN
     Dosage: 10/325MG EVERY 4 TO 6 HOURS
     Route: 048
  4. NAPROXEN SODIUM [Concomitant]
     Indication: PAIN
     Route: 048
  5. SONATA [Concomitant]
     Indication: INSOMNIA
     Dosage: AT BEDTIME
     Route: 048
  6. NEXIUM [Concomitant]
     Indication: DYSPEPSIA
  7. CHOLESTEROL MEDICATION [Concomitant]
     Indication: PRODUCT USED FOR UNKNOWN INDICATION
     Dosage: DAILY
     Route: 048
  8. BLOOD THINNERS [Concomitant]
     Indication: PROPHYLAXIS
     Dosage: DAILY
     Route: 048

REACTIONS (2)
  - Neck pain [Not Recovered/Not Resolved]
  - Back pain [Not Recovered/Not Resolved]
